FAERS Safety Report 4509022-3 (Version None)
Quarter: 2004Q4

REPORT INFORMATION
  Report Type: 
  Country: None (occurrence: None)
  Receive Date: 20041122
  Receipt Date: 20041122
  Transmission Date: 20050328
  Serious: Yes (Other)
  Sender: FDA-Public Use
  Company Number: None

PATIENT
  Age: 52 Year
  Sex: Female
  Weight: 56.6996 kg

DRUGS (2)
  1. TEQUIN [Suspect]
     Indication: DECUBITUS ULCER
     Dosage: 400 MG ONCE/DAY
     Dates: start: 20040522, end: 20040526
  2. HYDROCODONE [Concomitant]

REACTIONS (9)
  - AGEUSIA [None]
  - ASTHENIA [None]
  - BONE PAIN [None]
  - DIARRHOEA [None]
  - DIFFICULTY IN WALKING [None]
  - MUSCULOSKELETAL STIFFNESS [None]
  - NIGHTMARE [None]
  - PAIN [None]
  - TENDON DISORDER [None]
